FAERS Safety Report 4574784-6 (Version None)
Quarter: 2005Q1

REPORT INFORMATION
  Report Type: 
  Country: None (occurrence: None)
  Receive Date: 20050208
  Receipt Date: 20040624
  Transmission Date: 20050727
  Serious: No
  Sender: FDA-Public Use
  Company Number: US-GLAXOSMITHKLINE-A0515877A

PATIENT
  Age: 65 Year
  Sex: Female

DRUGS (3)
  1. PAXIL CR [Suspect]
     Dosage: 12.5MG PER DAY
     Route: 048
     Dates: start: 20040501
  2. VERAPAMIL [Concomitant]
  3. XANAX [Concomitant]

REACTIONS (5)
  - ANXIETY [None]
  - ASTHENIA [None]
  - HEADACHE [None]
  - PALPITATIONS [None]
  - WEIGHT INCREASED [None]
